FAERS Safety Report 14244799 (Version 2)
Quarter: 2017Q4

REPORT INFORMATION
  Report Type: Spontaneous
  Country: PT (occurrence: PT)
  Receive Date: 20171201
  Receipt Date: 20171208
  Transmission Date: 20180321
  Serious: Yes (Hospitalization, Other)
  Sender: FDA-Public Use
  Company Number: PT-ABBVIE-17P-130-2178541-00

PATIENT
  Age: 33 Year
  Sex: Female

DRUGS (5)
  1. CYCLOSPORINE. [Suspect]
     Active Substance: CYCLOSPORINE
     Indication: BEHCET^S SYNDROME
     Route: 065
  2. LOSARTAN. [Concomitant]
     Active Substance: LOSARTAN
     Indication: HYPERTENSION
  3. PREDNISOLONE. [Suspect]
     Active Substance: PREDNISOLONE
     Route: 065
  4. ADALIMUMAB [Suspect]
     Active Substance: ADALIMUMAB
     Indication: BEHCET^S SYNDROME
     Route: 058
  5. PREDNISOLONE. [Suspect]
     Active Substance: PREDNISOLONE
     Indication: BEHCET^S SYNDROME
     Route: 065

REACTIONS (7)
  - Tonsillitis [Recovering/Resolving]
  - Pulmonary tuberculosis [Recovering/Resolving]
  - Mycobacterium tuberculosis complex test positive [Recovered/Resolved]
  - Odynophagia [Recovering/Resolving]
  - Mycobacterium test positive [Recovered/Resolved]
  - Pyrexia [Recovered/Resolved]
  - Tonsillar ulcer [Recovered/Resolved]
